FAERS Safety Report 21497131 (Version 4)
Quarter: 2023Q1

REPORT INFORMATION
  Report Type: Other
  Country: JP (occurrence: JP)
  Receive Date: 20221023
  Receipt Date: 20230306
  Transmission Date: 20230418
  Serious: Yes (Life-Threatening, Other)
  Sender: FDA-Public Use
  Company Number: JP-CHUGAI-2022041468

PATIENT
  Age: 40 Year
  Sex: Female
  Weight: 65 kg

DRUGS (3)
  1. AVASTIN [Suspect]
     Active Substance: BEVACIZUMAB
     Indication: Breast cancer
     Route: 041
     Dates: start: 202105
  2. PACLITAXEL [Suspect]
     Active Substance: PACLITAXEL
     Indication: Breast cancer
     Route: 041
  3. PACLITAXEL [Concomitant]
     Active Substance: PACLITAXEL
     Indication: Breast cancer
     Dosage: UNK
     Route: 041
     Dates: start: 202105

REACTIONS (2)
  - Cardiomyopathy [Recovering/Resolving]
  - Subclavian vein thrombosis [Unknown]

NARRATIVE: CASE EVENT DATE: 20210601
